FAERS Safety Report 14854101 (Version 1)
Quarter: 2018Q2

REPORT INFORMATION
  Report Type: Spontaneous
  Country: DE (occurrence: DE)
  Receive Date: 20180507
  Receipt Date: 20180507
  Transmission Date: 20180711
  Serious: Yes (Other)
  Sender: FDA-Public Use
  Company Number: DE-BAYER-2018-081217

PATIENT
  Age: 57 Year
  Sex: Male
  Weight: 95 kg

DRUGS (2)
  1. GADOVIST [Suspect]
     Active Substance: GADOBUTROL
     Indication: NUCLEAR MAGNETIC RESONANCE IMAGING
     Dosage: 10 ML, ONCE
     Dates: start: 20180410, end: 20180410
  2. GADOVIST [Suspect]
     Active Substance: GADOBUTROL
     Indication: MYASTHENIA GRAVIS

REACTIONS (2)
  - Bradyphrenia [None]
  - Confusional state [None]

NARRATIVE: CASE EVENT DATE: 20180410
